FAERS Safety Report 23258081 (Version 1)
Quarter: 2023Q4

REPORT INFORMATION
  Report Type: Report from Study
  Country: US (occurrence: US)
  Receive Date: 20231204
  Receipt Date: 20231204
  Transmission Date: 20240110
  Serious: Yes (Hospitalization)
  Sender: FDA-Public Use
  Company Number: US-ORPHANEU-2023008484

PATIENT

DRUGS (5)
  1. CYSTADANE [Suspect]
     Active Substance: BETAINE
     Indication: Homocystinuria
     Dosage: 3 DOSAGE FORM (SCOOPS), BID
     Route: 048
     Dates: start: 20221120, end: 20231120
  2. CYSTADANE [Suspect]
     Active Substance: BETAINE
     Dosage: 3 DOSAGE FORM (SCOOPS), BID
     Route: 048
     Dates: start: 2023
  3. WARFARIN [Suspect]
     Active Substance: WARFARIN
     Indication: Thrombosis
     Dosage: 5 MG
     Dates: end: 2023
  4. LOSARTAN [Concomitant]
     Active Substance: LOSARTAN
     Indication: Product used for unknown indication
     Dosage: 50 MG
  5. GABAPENTIN [Concomitant]
     Active Substance: GABAPENTIN
     Indication: Product used for unknown indication
     Dosage: 400 MG

REACTIONS (2)
  - Haematuria [Unknown]
  - Renal disorder [Unknown]

NARRATIVE: CASE EVENT DATE: 20230101
